FAERS Safety Report 6719633-2 (Version None)
Quarter: 2010Q2

REPORT INFORMATION
  Report Type: 
  Country: None (occurrence: None)
  Receive Date: 20100511
  Receipt Date: 20100426
  Transmission Date: 20101027
  Serious: Yes (Death, Hospitalization)
  Sender: FDA-Public Use
  Company Number: AT-ELI_LILLY_AND_COMPANY-AT201004006691

PATIENT
  Sex: Female
  Weight: 53 kg

DRUGS (8)
  1. PEMETREXED [Suspect]
     Indication: NON-SMALL CELL LUNG CANCER
     Dosage: 775 MG, 1 IN 3 WEEKS
     Route: 042
     Dates: start: 20100406, end: 20100406
  2. OTHER PHARMA COMPANY INV DRUG [Suspect]
     Indication: NON-SMALL CELL LUNG CANCER
     Dosage: 800 MG, 2 IN 3 WEEKS
     Route: 042
     Dates: start: 20100406, end: 20100406
  3. CISPLATIN [Suspect]
     Indication: NON-SMALL CELL LUNG CANCER
     Dosage: 116.5 MG, 1 IN 3 WEEKS
     Route: 042
     Dates: start: 20100406, end: 20100406
  4. ACETYLSALICYLIC ACID [Concomitant]
     Indication: ATRIAL FIBRILLATION
     Dosage: 100 MG, UNK
     Dates: start: 20100215
  5. ACTONEL [Concomitant]
     Indication: OSTEOPOROSIS
     Dates: start: 20100219
  6. CALCIUM [Concomitant]
     Indication: OSTEOPOROSIS
     Dates: start: 20100219
  7. TRAMAL                                  /GFR/ [Concomitant]
     Indication: FRACTURE
     Dates: start: 20100215
  8. MOGADON [Concomitant]
     Indication: INSOMNIA
     Dates: start: 19950101

REACTIONS (10)
  - DIARRHOEA [None]
  - DIVERTICULUM [None]
  - GASTROINTESTINAL PERFORATION [None]
  - HAEMOGLOBIN DECREASED [None]
  - MONOCYTE PERCENTAGE DECREASED [None]
  - MUCOSAL INFLAMMATION [None]
  - NEUTROPENIA [None]
  - PERITONITIS [None]
  - SEPSIS [None]
  - WHITE BLOOD CELL COUNT INCREASED [None]
